FAERS Safety Report 6706069-3 (Version None)
Quarter: 2010Q2

REPORT INFORMATION
  Report Type: 
  Country: None (occurrence: None)
  Receive Date: 20100503
  Receipt Date: 20091203
  Transmission Date: 20101027
  Serious: Yes (Hospitalization)
  Sender: FDA-Public Use
  Company Number: US-SANOFI-AVENTIS-2009SA002597

PATIENT
  Age: 60 Year
  Sex: Male

DRUGS (5)
  1. ELOXATIN [Suspect]
     Indication: RECTAL CANCER
     Route: 042
     Dates: start: 20091001, end: 20091001
  2. ELOXATIN [Suspect]
     Route: 042
     Dates: start: 20091026, end: 20091026
  3. ELOXATIN [Suspect]
     Route: 042
     Dates: start: 20091102, end: 20091102
  4. FLUOROURACIL [Suspect]
     Indication: RECTAL CANCER
     Route: 042
     Dates: start: 20091001, end: 20091001
  5. FLUOROURACIL [Suspect]
     Route: 042
     Dates: start: 20091102, end: 20091102

REACTIONS (1)
  - BLOOD AMYLASE INCREASED [None]
